FAERS Safety Report 7954325-3 (Version None)
Quarter: 2011Q4

REPORT INFORMATION
  Report Type: 
  Country: None (occurrence: None)
  Receive Date: 20111202
  Receipt Date: 20111129
  Transmission Date: 20120403
  Serious: Yes (Other)
  Sender: FDA-Public Use
  Company Number: US-BAYER-2011-115048

PATIENT
  Age: 51 Year
  Sex: Male

DRUGS (2)
  1. ANTIBIOTICS [Concomitant]
     Dates: start: 20111129
  2. NEXAVAR [Suspect]
     Indication: HEPATIC NEOPLASM MALIGNANT
     Dosage: 400 MG, BID
     Dates: start: 20111120

REACTIONS (6)
  - APHASIA [None]
  - PYREXIA [None]
  - PAIN IN EXTREMITY [None]
  - DERMATITIS ACNEIFORM [None]
  - MOTOR DYSFUNCTION [None]
  - SKIN DISCOLOURATION [None]
